FAERS Safety Report 15849638 (Version 1)
Quarter: 2019Q1

REPORT INFORMATION
  Report Type: Spontaneous
  Country: FR (occurrence: FR)
  Receive Date: 20190121
  Receipt Date: 20190121
  Transmission Date: 20190417
  Serious: Yes (Hospitalization)
  Sender: FDA-Public Use
  Company Number: PHHY2019FR012162

PATIENT
  Age: 77 Year
  Sex: Female

DRUGS (3)
  1. REVLIMID [Suspect]
     Active Substance: LENALIDOMIDE
     Indication: PLASMA CELL MYELOMA
     Dosage: UNK (NON RENSEIGN?E)
     Route: 048
  2. ALLOPURINOL. [Suspect]
     Active Substance: ALLOPURINOL
     Indication: PLASMA CELL MYELOMA
     Dosage: UNK (NON RENSEIGN?E)
     Route: 048
  3. ORACILLIN [PHENOXYMETHYLPENICILLIN BENZATHINE] [Suspect]
     Active Substance: PENICILLIN V BENZATHINE
     Indication: PLASMA CELL MYELOMA
     Dosage: UNK (NON RENSEIGN?E)
     Route: 048

REACTIONS (1)
  - Drug reaction with eosinophilia and systemic symptoms [Recovered/Resolved]

NARRATIVE: CASE EVENT DATE: 20181212
